FAERS Safety Report 23360929 (Version 1)
Quarter: 2024Q1

REPORT INFORMATION
  Report Type: Report from Study
  Country: US (occurrence: None)
  Receive Date: 20240103
  Receipt Date: 20240103
  Transmission Date: 20240410
  Serious: Yes (Other)
  Sender: FDA-Public Use
  Company Number: 2023A294098

PATIENT
  Sex: Female
  Weight: 136.5 kg

DRUGS (1)
  1. CALQUENCE [Suspect]
     Active Substance: ACALABRUTINIB
     Indication: B-cell small lymphocytic lymphoma
     Route: 048
     Dates: end: 20231224

REACTIONS (4)
  - Pulmonary thrombosis [Unknown]
  - Nasal congestion [Not Recovered/Not Resolved]
  - Cognitive disorder [Not Recovered/Not Resolved]
  - Hallucination [Unknown]
